FAERS Safety Report 12438624 (Version 1)
Quarter: 2016Q2

REPORT INFORMATION
  Report Type: Spontaneous
  Country: US (occurrence: US)
  Receive Date: 20160606
  Receipt Date: 20160606
  Transmission Date: 20160815
  Serious: Yes (Hospitalization, Other)
  Sender: FDA-Public Use
  Company Number: US-SMITH AND NEPHEW, INC-2016SMT00474

PATIENT
  Age: 67 Year
  Sex: Female
  Weight: 62.13 kg

DRUGS (7)
  1. NOVOLOG [Concomitant]
     Active Substance: INSULIN ASPART
  2. FUROSEMIDE. [Concomitant]
     Active Substance: FUROSEMIDE
  3. UNSPECIFIED OTHER MEDICATIONS [Concomitant]
     Active Substance: UNSPECIFIED INGREDIENT
  4. REGRANEX [Suspect]
     Active Substance: BECAPLERMIN
     Indication: LACERATION
     Dosage: UNK, 1X/DAY
     Route: 061
     Dates: start: 201603, end: 20160519
  5. LEVEMIR [Concomitant]
     Active Substance: INSULIN DETEMIR
  6. LEVOTHYROXINE SODIUM. [Concomitant]
     Active Substance: LEVOTHYROXINE SODIUM
  7. SPIRONOLACTONE. [Concomitant]
     Active Substance: SPIRONOLACTONE

REACTIONS (4)
  - Toe amputation [Recovered/Resolved with Sequelae]
  - Bone disorder [Recovered/Resolved with Sequelae]
  - Pneumonia [Unknown]
  - Wound complication [Recovered/Resolved with Sequelae]

NARRATIVE: CASE EVENT DATE: 2016
